FAERS Safety Report 21008388 (Version 2)
Quarter: 2023Q2

REPORT INFORMATION
  Report Type: Spontaneous
  Country: US (occurrence: US)
  Receive Date: 20220627
  Receipt Date: 20230523
  Transmission Date: 20230722
  Serious: Yes (Other)
  Sender: FDA-Public Use
  Company Number: US-drreddys-LIT/USA/22/0151556

PATIENT
  Age: 8 Year
  Sex: Female

DRUGS (6)
  1. MINOCYCLINE HYDROCHLORIDE [Suspect]
     Active Substance: MINOCYCLINE HYDROCHLORIDE
     Indication: Annular elastolytic giant cell granuloma
  2. MINOCYCLINE HYDROCHLORIDE [Suspect]
     Active Substance: MINOCYCLINE HYDROCHLORIDE
     Indication: Lymphomatoid papulosis
  3. METHOTREXATE [Suspect]
     Active Substance: METHOTREXATE
     Indication: Annular elastolytic giant cell granuloma
  4. METHOTREXATE [Suspect]
     Active Substance: METHOTREXATE
     Indication: Lymphomatoid papulosis
  5. HYDROXYCHLOROQUINE SULFATE [Concomitant]
     Active Substance: HYDROXYCHLOROQUINE SULFATE
     Indication: Annular elastolytic giant cell granuloma
  6. TACROLIMUS [Concomitant]
     Active Substance: TACROLIMUS
     Indication: Annular elastolytic giant cell granuloma

REACTIONS (1)
  - Drug ineffective [Unknown]
